FAERS Safety Report 5436066-X (Version None)
Quarter: 2007Q3

REPORT INFORMATION
  Report Type: 
  Country: None (occurrence: None)
  Receive Date: 20070831
  Receipt Date: 20070817
  Transmission Date: 20080115
  Serious: Yes (Other)
  Sender: FDA-Public Use
  Company Number: CH-ELI_LILLY_AND_COMPANY-CH200708003571

PATIENT
  Age: 25 Year
  Sex: Female

DRUGS (3)
  1. ZYPREXA [Suspect]
     Dosage: 10 MG, DAILY (1/D)
     Route: 048
  2. FLUCTINE [Suspect]
     Dosage: 20 MG, DAILY (1/D)
     Route: 048
  3. METHADONE HCL [Concomitant]
     Dosage: 85 MG, DAILY (1/D)
     Route: 065

REACTIONS (3)
  - ABORTION SPONTANEOUS COMPLICATED [None]
  - DRUG EXPOSURE DURING PREGNANCY [None]
  - PREMATURE RUPTURE OF MEMBRANES [None]
